FAERS Safety Report 19458970 (Version 1)
Quarter: 2021Q2

REPORT INFORMATION
  Report Type: Spontaneous
  Country: US (occurrence: US)
  Receive Date: 20210625
  Receipt Date: 20210625
  Transmission Date: 20210717
  Serious: No
  Sender: FDA-Public Use
  Company Number: None

PATIENT
  Age: 84 Year
  Sex: Female
  Weight: 72.3 kg

DRUGS (13)
  1. MULTIVITAMIN [Concomitant]
     Active Substance: VITAMINS
  2. NORVASC [Concomitant]
     Active Substance: AMLODIPINE BESYLATE
  3. FULVESTRANT. [Concomitant]
     Active Substance: FULVESTRANT
  4. ONDANSETRON [Concomitant]
     Active Substance: ONDANSETRON
  5. PIQRAY [Suspect]
     Active Substance: ALPELISIB
     Indication: BREAST CANCER
     Route: 048
     Dates: start: 20210409
  6. IBRANCE [Concomitant]
     Active Substance: PALBOCICLIB
  7. VITAMIN D3 [Concomitant]
     Active Substance: CHOLECALCIFEROL
  8. FISH OIL [Concomitant]
     Active Substance: FISH OIL
  9. CALCIUM?MG?ZINC [Concomitant]
  10. MILK OF MAGNESIA [Concomitant]
     Active Substance: MAGNESIUM HYDROXIDE
  11. TYLENOL [Concomitant]
     Active Substance: ACETAMINOPHEN
  12. PEPCID AC [Concomitant]
     Active Substance: FAMOTIDINE
  13. SODIUM CHLORIDE FLUSH [Concomitant]
     Active Substance: SODIUM CHLORIDE

REACTIONS (1)
  - Drug ineffective [None]

NARRATIVE: CASE EVENT DATE: 20210625
